FAERS Safety Report 4555718-7 (Version None)
Quarter: 2005Q1

REPORT INFORMATION
  Report Type: 
  Country: None (occurrence: None)
  Receive Date: 20050112
  Receipt Date: 20040602
  Transmission Date: 20050727
  Serious: Yes (Hospitalization, Other)
  Sender: FDA-Public Use
  Company Number: 200418270BWH

PATIENT
  Age: 40 Year
  Sex: Female
  Weight: 47.6277 kg

DRUGS (3)
  1. CIPRO [Suspect]
     Indication: CYSTITIS
     Dosage: 1000 MG, TOTAL DAILY, ORAL
     Route: 048
     Dates: start: 19980101
  2. SEPTRA DS [Concomitant]
  3. DITROPAN [Concomitant]

REACTIONS (4)
  - DEAFNESS UNILATERAL [None]
  - DIZZINESS [None]
  - NAUSEA [None]
  - VOMITING [None]
